FAERS Safety Report 16986714 (Version 1)
Quarter: 2019Q4

REPORT INFORMATION
  Report Type: Spontaneous
  Country: CA (occurrence: CA)
  Receive Date: 20191101
  Receipt Date: 20191101
  Transmission Date: 20200122
  Serious: Yes (Other)
  Sender: FDA-Public Use
  Company Number: CA-TEVA-2019-CA-1129581

PATIENT
  Age: 21 Year
  Sex: Male

DRUGS (3)
  1. ATOMOXETINE HYDROCHLORIDE. [Suspect]
     Active Substance: ATOMOXETINE HYDROCHLORIDE
     Indication: ATTENTION DEFICIT/HYPERACTIVITY DISORDER
     Route: 065
  2. CONCERTA [Concomitant]
     Active Substance: METHYLPHENIDATE HYDROCHLORIDE
     Indication: PRODUCT USED FOR UNKNOWN INDICATION
     Route: 065
  3. ATOMOXETINE HYDROCHLORIDE. [Suspect]
     Active Substance: ATOMOXETINE HYDROCHLORIDE
     Indication: PSYCHOMOTOR HYPERACTIVITY
     Dosage: 18 MILLIGRAM DAILY;
     Route: 048

REACTIONS (7)
  - Impatience [Recovering/Resolving]
  - Tic [Recovering/Resolving]
  - Aggression [Recovering/Resolving]
  - Altered state of consciousness [Recovering/Resolving]
  - Paranoia [Recovering/Resolving]
  - Obsessive thoughts [Recovering/Resolving]
  - Feeling guilty [Recovering/Resolving]
